FAERS Safety Report 7036224-7 (Version None)
Quarter: 2010Q4

REPORT INFORMATION
  Report Type: 
  Country: None (occurrence: None)
  Receive Date: 20101008
  Receipt Date: 20100928
  Transmission Date: 20110411
  Serious: Yes (Hospitalization)
  Sender: FDA-Public Use
  Company Number: DE-TYCO HEALTHCARE/MALLINCKRODT-T201002066

PATIENT
  Age: 25 Year
  Sex: Female

DRUGS (4)
  1. TRAMADOL [Suspect]
     Dosage: UNK
  2. METOCLOPRAMIDE [Suspect]
     Dosage: UNK
  3. NONSTEROIDAL ANTIRHEUMATICS [Suspect]
     Dosage: UNK
  4. CANNABIS [Suspect]
     Dosage: UNK

REACTIONS (1)
  - PORPHYRIA ACUTE [None]
